FAERS Safety Report 5322626-3 (Version None)
Quarter: 2007Q2

REPORT INFORMATION
  Report Type: 
  Country: None (occurrence: None)
  Receive Date: 20070511
  Receipt Date: 20070502
  Transmission Date: 20071010
  Serious: Yes (Other)
  Sender: FDA-Public Use
  Company Number: AT-ABBOTT-07P-009-0366749-00

PATIENT
  Age: 46 Year
  Sex: Male

DRUGS (3)
  1. HUMIRA [Suspect]
     Indication: PSORIATIC ARTHROPATHY
     Route: 058
     Dates: start: 20051101, end: 20061101
  2. HUMIRA [Suspect]
     Route: 058
     Dates: start: 20070301
  3. METHOTREXATE SODIUM [Concomitant]
     Indication: PSORIATIC ARTHROPATHY
     Dates: start: 20060201

REACTIONS (1)
  - ALOPECIA UNIVERSALIS [None]
